FAERS Safety Report 9261504 (Version 2)
Quarter: 2013Q2

REPORT INFORMATION
  Report Type: Spontaneous
  Country: IT (occurrence: IT)
  Receive Date: 20130429
  Receipt Date: 20130612
  Transmission Date: 20140414
  Serious: Yes (Hospitalization)
  Sender: FDA-Public Use
  Company Number: IT-BAYER-2013-049914

PATIENT
  Age: 81 Year
  Sex: Female

DRUGS (3)
  1. ACETYLSALICYLIC ACID({=100 MG) [Suspect]
     Indication: CEREBROVASCULAR DISORDER
     Dosage: 100 MG, QD
     Route: 048
     Dates: start: 20000101, end: 20130216
  2. SERTRALINE [Concomitant]
     Indication: ANXIETY
     Dosage: DAILY DOSE 25 MG
     Route: 048
  3. DELTACORTENE [Concomitant]
     Indication: PEMPHIGUS
     Dosage: DAILY DOSE 5 MG
     Route: 048

REACTIONS (2)
  - Asthenia [Recovered/Resolved]
  - Anaemia [Recovered/Resolved]
